FAERS Safety Report 10946576 (Version 1)
Quarter: 2015Q1

REPORT INFORMATION
  Report Type: Spontaneous
  Country: JP (occurrence: JP)
  Receive Date: 20150323
  Receipt Date: 20150323
  Transmission Date: 20150721
  Serious: Yes (Death, Other)
  Sender: FDA-Public Use
  Company Number: JP-PFIZER INC-2015096425

PATIENT
  Age: 49 Year
  Sex: Male

DRUGS (2)
  1. UNASYN [Suspect]
     Active Substance: AMPICILLIN SODIUM\SULBACTAM SODIUM
     Dosage: UNK
     Dates: start: 201305, end: 201305
  2. ZITHROMAC [Suspect]
     Active Substance: AZITHROMYCIN DIHYDRATE
     Dosage: UNK
     Dates: start: 201304, end: 201304

REACTIONS (2)
  - Toxic epidermal necrolysis [Fatal]
  - Drug eruption [Unknown]

NARRATIVE: CASE EVENT DATE: 20130423
